FAERS Safety Report 19172249 (Version 10)
Quarter: 2022Q1

REPORT INFORMATION
  Report Type: Report from Study
  Country: US (occurrence: US)
  Receive Date: 20210423
  Receipt Date: 20220328
  Transmission Date: 20220423
  Serious: Yes (Hospitalization)
  Sender: FDA-Public Use
  Company Number: US-JNJFOC-20210421320

PATIENT
  Age: 72 Year
  Sex: Female
  Weight: 61.4 kg

DRUGS (6)
  1. UPTRAVI [Suspect]
     Active Substance: SELEXIPAG
     Indication: Pulmonary arterial hypertension
     Route: 048
     Dates: start: 2019
  2. UPTRAVI [Suspect]
     Active Substance: SELEXIPAG
     Route: 048
  3. MACITENTAN [Suspect]
     Active Substance: MACITENTAN
     Indication: Pulmonary arterial hypertension
     Route: 048
     Dates: start: 2019
  4. REMODULIN [Suspect]
     Active Substance: TREPROSTINIL
     Dosage: CONFIRMED PUMP RATE OF 0.038 MILLILITERS PER HOUR
     Route: 058
  5. OXYGEN [Concomitant]
     Active Substance: OXYGEN
     Dosage: 11 LITERS
     Route: 065
  6. SILDENAFIL CITRATE [Concomitant]
     Active Substance: SILDENAFIL CITRATE

REACTIONS (13)
  - Sepsis [Unknown]
  - Fungal infection [Unknown]
  - Pneumonia [Unknown]
  - COVID-19 [Unknown]
  - Pain [Unknown]
  - Injection site reaction [Unknown]
  - Injection site swelling [Unknown]
  - Blood pressure decreased [Unknown]
  - Injection site pain [Not Recovered/Not Resolved]
  - Sciatica [Not Recovered/Not Resolved]
  - Insomnia [Unknown]
  - Arthritis [Not Recovered/Not Resolved]
  - Muscle spasms [Not Recovered/Not Resolved]

NARRATIVE: CASE EVENT DATE: 20200101
